FAERS Safety Report 9301371 (Version 1)
Quarter: 2013Q2

REPORT INFORMATION
  Report Type: Spontaneous
  Country: US (occurrence: None)
  Receive Date: 20130520
  Receipt Date: 20130520
  Transmission Date: 20140414
  Serious: Yes (Hospitalization)
  Sender: FDA-Public Use
  Company Number: None

PATIENT
  Age: 49 Year
  Sex: Male
  Weight: 75 kg

DRUGS (1)
  1. DOCETAXEL (TAXOTERE) [Suspect]

REACTIONS (10)
  - Pain [None]
  - Constipation [None]
  - Diarrhoea [None]
  - Myalgia [None]
  - Colitis [None]
  - Colitis ischaemic [None]
  - Febrile neutropenia [None]
  - Hypotension [None]
  - Dehydration [None]
  - Pneumonia [None]
